FAERS Safety Report 8965182 (Version 1)
Quarter: 2012Q4

REPORT INFORMATION
  Report Type: 
  Country: US (occurrence: US)
  Receive Date: 20121213
  Receipt Date: 20121213
  Transmission Date: 20130627
  Serious: Yes (Hospitalization, Other)
  Sender: FDA-Public Use
  Company Number: US-BRISTOL-MYERS SQUIBB COMPANY-16380396

PATIENT
  Age: 54 Year
  Sex: Female

DRUGS (6)
  1. IXEMPRA [Suspect]
     Indication: BREAST CANCER METASTATIC
     Dosage: Started in Nov17th
  2. XELODA [Concomitant]
  3. ZANTAC [Concomitant]
  4. BENADRYL [Concomitant]
  5. VITAMIN D [Concomitant]
  6. FISH OIL [Concomitant]

REACTIONS (3)
  - Bone marrow failure [Unknown]
  - Chest pain [Recovering/Resolving]
  - Arthralgia [Unknown]
